FAERS Safety Report 8082260-1 (Version None)
Quarter: 2012Q1

REPORT INFORMATION
  Report Type: 
  Country: None (occurrence: None)
  Receive Date: 20120127
  Receipt Date: 20110212
  Transmission Date: 20120608
  Serious: Yes (Other)
  Sender: FDA-Public Use
  Company Number: US-ABBOTT-11P-163-0705417-00

PATIENT
  Sex: Female

DRUGS (8)
  1. VENLAFAXINE [Concomitant]
     Indication: ANKYLOSING SPONDYLITIS
  2. VITAMIN D [Concomitant]
     Indication: PRODUCT USED FOR UNKNOWN INDICATION
  3. PREVACID [Concomitant]
     Indication: GASTROOESOPHAGEAL REFLUX DISEASE
  4. HUMIRA [Suspect]
     Indication: ANKYLOSING SPONDYLITIS
     Route: 058
     Dates: start: 20080101
  5. VENLAFAXINE [Concomitant]
     Indication: ANXIETY
  6. VENLAFAXINE [Concomitant]
     Indication: DEPRESSION
  7. MOTRIN [Concomitant]
     Indication: PAIN
  8. ACETAMINOPHEN [Concomitant]
     Indication: PAIN

REACTIONS (3)
  - KNEE OPERATION [None]
  - BRONCHITIS [None]
  - ANKYLOSING SPONDYLITIS [None]
